FAERS Safety Report 6675253-X (Version None)
Quarter: 2010Q2

REPORT INFORMATION
  Report Type: 
  Country: None (occurrence: None)
  Receive Date: 20100409
  Receipt Date: 20091216
  Transmission Date: 20101027
  Serious: No
  Sender: FDA-Public Use
  Company Number: A0835432A

PATIENT
  Age: 72 Year
  Sex: Male

DRUGS (7)
  1. TYKERB [Suspect]
     Indication: BREAST CANCER
     Dosage: 4TAB PER DAY
     Route: 048
     Dates: start: 20091125
  2. XELODA [Concomitant]
  3. TPN [Concomitant]
  4. ADDERALL 30 [Concomitant]
  5. WATER PILL [Concomitant]
  6. WARFARIN SODIUM [Concomitant]
  7. RADIATION THERAPY [Concomitant]

REACTIONS (4)
  - ASTHENIA [None]
  - DEHYDRATION [None]
  - DIARRHOEA [None]
  - FOREIGN BODY [None]
